FAERS Safety Report 9703645 (Version 5)
Quarter: 2014Q2

REPORT INFORMATION
  Report Type: Spontaneous
  Country: US (occurrence: US)
  Receive Date: 20131122
  Receipt Date: 20140616
  Transmission Date: 20141212
  Serious: No
  Sender: FDA-Public Use
  Company Number: US-PFIZER INC-2013333978

PATIENT
  Age: 77 Year
  Sex: Female

DRUGS (4)
  1. LYRICA [Suspect]
     Dosage: 300 MG, 2X/DAY
     Route: 048
     Dates: start: 20131107
  2. LYRICA [Suspect]
     Dosage: 300 MG, 2X/DAY
     Route: 048
     Dates: start: 20131107
  3. WARFARIN [Concomitant]
     Dosage: 3 MG, DAILY
     Dates: start: 201206
  4. SIMVASTATIN [Concomitant]
     Dosage: 40 MG, DAILY

REACTIONS (1)
  - Drug ineffective [Recovered/Resolved]
